FAERS Safety Report 19267535 (Version 1)
Quarter: 2021Q2

REPORT INFORMATION
  Report Type: Other
  Country: US (occurrence: US)
  Receive Date: 20210517
  Receipt Date: 20210517
  Transmission Date: 20210717
  Serious: Yes (Other)
  Sender: FDA-Public Use
  Company Number: US-LANNETT COMPANY, INC.-US-2021LAN000160

PATIENT

DRUGS (1)
  1. LEVOTHYROXINE SODIUM. [Suspect]
     Active Substance: LEVOTHYROXINE SODIUM
     Indication: HYPOTHYROIDISM
     Dosage: UNK
     Route: 065

REACTIONS (26)
  - Memory impairment [Unknown]
  - Chest discomfort [Unknown]
  - Feeling cold [Unknown]
  - Immune system disorder [Unknown]
  - Feeling hot [Unknown]
  - Palpitations [Unknown]
  - Alopecia [Unknown]
  - Hypothyroidism [Unknown]
  - Asthenia [Unknown]
  - Illness [Unknown]
  - Agitation [Unknown]
  - Skin atrophy [Unknown]
  - Hyperhidrosis [Unknown]
  - Decreased appetite [Unknown]
  - Product quality issue [Unknown]
  - Logorrhoea [Unknown]
  - Cardiac disorder [Unknown]
  - Hyperthyroidism [Unknown]
  - Constipation [Unknown]
  - Muscular weakness [Unknown]
  - Drug ineffective [Unknown]
  - Bedridden [Unknown]
  - Myalgia [Unknown]
  - Swelling face [Unknown]
  - Goitre [Unknown]
  - Weight decreased [Unknown]
